FAERS Safety Report 6300467-8 (Version None)
Quarter: 2009Q3

REPORT INFORMATION
  Report Type: 
  Country: None (occurrence: None)
  Receive Date: 20090806
  Receipt Date: 20081021
  Transmission Date: 20100115
  Serious: No
  Sender: FDA-Public Use
  Company Number: US-ABBOTT-08P-163-0482317-00

PATIENT
  Sex: Female

DRUGS (6)
  1. DEPAKOTE ER [Suspect]
     Indication: DEPRESSION
     Route: 048
     Dates: start: 20080625, end: 20080625
  2. DEPAKOTE ER [Suspect]
     Indication: IRRITABILITY
     Route: 048
     Dates: start: 20080626, end: 20080701
  3. DEPAKOTE ER [Suspect]
     Route: 048
     Dates: start: 20080701
  4. FLUOXETINE [Concomitant]
     Indication: DRUG USE FOR UNKNOWN INDICATION
     Route: 048
  5. ESZOPICLONE [Concomitant]
     Indication: DRUG USE FOR UNKNOWN INDICATION
     Route: 048
  6. CLONAZEPAM [Concomitant]
     Indication: DRUG USE FOR UNKNOWN INDICATION
     Route: 048

REACTIONS (1)
  - WHITE BLOOD CELL COUNT DECREASED [None]
